FAERS Safety Report 9322875 (Version 1)
Quarter: 2013Q2

REPORT INFORMATION
  Report Type: Spontaneous
  Country: US (occurrence: US)
  Receive Date: 20130602
  Receipt Date: 20130602
  Transmission Date: 20140414
  Serious: Yes (Death, Hospitalization, Other)
  Sender: FDA-Public Use
  Company Number: US-TEVA-408587USA

PATIENT
  Age: 53 Year
  Sex: Female

DRUGS (10)
  1. ETHAMBUTOL [Suspect]
     Indication: TUBERCULOSIS
     Route: 065
  2. ISONIAZID, PYRIDOXINE [Suspect]
     Indication: TUBERCULOSIS
     Route: 065
  3. RIFAMPICIN [Suspect]
     Indication: TUBERCULOSIS
     Route: 065
  4. PYRAZINAMIDE [Suspect]
     Indication: TUBERCULOSIS
     Route: 065
  5. PREDNISONE [Concomitant]
     Indication: PULMONARY FIBROSIS
     Route: 065
  6. FENTANYL [Concomitant]
     Route: 065
  7. FUROSEMIDE [Concomitant]
     Route: 065
  8. FLUOXETINE [Concomitant]
     Route: 065
  9. METOPROLOL [Concomitant]
     Route: 065
  10. FERROUS SULFATE [Concomitant]
     Route: 065

REACTIONS (5)
  - Hepatitis [Recovering/Resolving]
  - Renal failure acute [Unknown]
  - Septic shock [Unknown]
  - Multi-organ failure [Unknown]
  - Death [Fatal]
